FAERS Safety Report 15423998 (Version 1)
Quarter: 2018Q3

REPORT INFORMATION
  Report Type: Spontaneous
  Country: US (occurrence: US)
  Receive Date: 20180918
  Receipt Date: 20180918
  Transmission Date: 20181010
  Serious: No
  Sender: FDA-Public Use
  Company Number: None

PATIENT

DRUGS (1)
  1. ENOXAPARIN INJ [Suspect]
     Active Substance: ENOXAPARIN SODIUM
     Dates: start: 20180830

REACTIONS (1)
  - Injection site bruising [None]
